FAERS Safety Report 4694780-8 (Version None)
Quarter: 2005Q2

REPORT INFORMATION
  Report Type: 
  Country: None (occurrence: None)
  Receive Date: 20050620
  Receipt Date: 20040823
  Transmission Date: 20051028
  Serious: Yes (Other)
  Sender: FDA-Public Use
  Company Number: PHFR2004GB04767

PATIENT

DRUGS (3)
  1. GLEEVEC [Suspect]
     Dosage: 400MG/DAY
  2. GLEEVEC [Suspect]
     Dosage: 400MG/D
  3. GLEEVEC [Suspect]
     Dosage: UNK, UNK

REACTIONS (2)
  - CYST [None]
  - NECROSIS [None]
